FAERS Safety Report 6939948-2 (Version None)
Quarter: 2010Q3

REPORT INFORMATION
  Report Type: 
  Country: None (occurrence: None)
  Receive Date: 20100825
  Receipt Date: 20100818
  Transmission Date: 20110219
  Serious: Yes (Other)
  Sender: FDA-Public Use
  Company Number: US-PFIZER INC-2008036382

PATIENT
  Sex: Female
  Weight: 73 kg

DRUGS (5)
  1. LIPITOR [Suspect]
     Indication: MITRAL VALVE PROLAPSE
     Dosage: 10 MG, 1X/DAY
     Dates: start: 20070501
  2. LIPITOR [Suspect]
     Indication: BLOOD CHOLESTEROL
  3. ZETIA [Suspect]
     Dosage: UNK
  4. TOPROL-XL [Concomitant]
     Indication: MITRAL VALVE PROLAPSE
     Dosage: UNK
  5. FIORICET [Concomitant]
     Dosage: UNK

REACTIONS (4)
  - GINGIVAL PAIN [None]
  - HEADACHE [None]
  - HYPERTONIC BLADDER [None]
  - TOOTHACHE [None]
